FAERS Safety Report 8695038 (Version 2)
Quarter: 2013Q4

REPORT INFORMATION
  Report Type: Spontaneous
  Country: US (occurrence: US)
  Receive Date: 20120731
  Receipt Date: 20131031
  Transmission Date: 20140711
  Serious: No
  Sender: FDA-Public Use
  Company Number: US-009507513-2012SP035644

PATIENT
  Sex: Male

DRUGS (2)
  1. PEGINTRON [Suspect]
     Indication: HEPATITIS C
     Dosage: 150/0.5 MCG, ONE INJECTION
     Route: 058
     Dates: start: 201206
  2. REBETOL [Suspect]

REACTIONS (1)
  - Nausea [Not Recovered/Not Resolved]
